FAERS Safety Report 13928731 (Version 2)
Quarter: 2017Q3

REPORT INFORMATION
  Report Type: Report from Study
  Country: CA (occurrence: CA)
  Receive Date: 20170901
  Receipt Date: 20170907
  Transmission Date: 20171127
  Serious: Yes (Other)
  Sender: FDA-Public Use
  Company Number: CA-AMGEN-CANSL2017131730

PATIENT
  Age: 74 Year
  Sex: Male

DRUGS (3)
  1. ENBREL [Suspect]
     Active Substance: ETANERCEPT
     Dosage: 50 MG, UNK
     Route: 065
  2. GOLIMUMAB [Concomitant]
     Active Substance: GOLIMUMAB
     Indication: PSORIATIC ARTHROPATHY
     Dosage: 100 MG, Q4WK
     Dates: end: 201609
  3. ENBREL [Suspect]
     Active Substance: ETANERCEPT
     Indication: PSORIATIC ARTHROPATHY
     Dosage: 50 MG, UNK
     Route: 065
     Dates: start: 20041201, end: 201609

REACTIONS (6)
  - Vascular stenosis [Unknown]
  - Psoriatic arthropathy [Unknown]
  - End stage renal disease [Unknown]
  - Treatment failure [Unknown]
  - Peripheral ischaemia [Unknown]
  - Psoriasis [Unknown]

NARRATIVE: CASE EVENT DATE: 201708
